FAERS Safety Report 7272958 (Version 3)
Quarter: 2013Q4

REPORT INFORMATION
  Report Type: Spontaneous
  Country: FR (occurrence: FR)
  Receive Date: 20100208
  Receipt Date: 20131030
  Transmission Date: 20140711
  Serious: Yes (Hospitalization)
  Sender: FDA-Public Use
  Company Number: FR-ASTRAZENECA-2010SE04370

PATIENT
  Age: 54 Year
  Sex: Female

DRUGS (4)
  1. NAROPEINE [Suspect]
     Indication: LOCAL ANAESTHESIA
     Route: 053
     Dates: start: 20081202
  2. NAROPEINE [Suspect]
     Indication: LOCAL ANAESTHESIA
     Route: 053
     Dates: start: 20081202
  3. CATAPRESSAN [Suspect]
     Indication: LOCAL ANAESTHESIA
     Route: 053
     Dates: start: 20081202
  4. CATAPRESSAN [Suspect]
     Indication: LOCAL ANAESTHESIA
     Route: 053
     Dates: start: 20081202

REACTIONS (4)
  - Gait disturbance [Recovering/Resolving]
  - Demyelinating polyneuropathy [Recovering/Resolving]
  - Pain in extremity [Recovering/Resolving]
  - Drug administration error [Unknown]
